FAERS Safety Report 8580053 (Version 2)
Quarter: 2012Q4

REPORT INFORMATION
  Report Type: 
  Country: DE (occurrence: DE)
  Receive Date: 20120525
  Receipt Date: 20120830
  Transmission Date: 20130627
  Serious: Yes (Hospitalization)
  Sender: FDA-Public Use
  Company Number: DE-SANOFI-AVENTIS-2012SA036414

PATIENT
  Age: 15 Year
  Sex: Female
  Weight: 69 kg

DRUGS (2)
  1. ARAVA [Suspect]
     Indication: JUVENILE IDIOPATHIC ARTHRITIS
     Route: 048
     Dates: start: 201107, end: 201206
  2. SULFASALAZIN [Concomitant]
     Indication: SERONEGATIVE ARTHRITIS
     Route: 048
     Dates: start: 201203, end: 201205

REACTIONS (3)
  - Myositis [Recovered/Resolved]
  - Blood creatine phosphokinase increased [Recovered/Resolved]
  - Vertigo positional [Not Recovered/Not Resolved]
